FAERS Safety Report 4505045-9 (Version None)
Quarter: 2004Q4

REPORT INFORMATION
  Report Type: 
  Country: None (occurrence: None)
  Receive Date: 20041116
  Receipt Date: 20041026
  Transmission Date: 20050328
  Serious: Yes (Death, Hospitalization)
  Sender: FDA-Public Use
  Company Number: JP_040703779

PATIENT
  Age: 85 Year
  Sex: Male
  Weight: 45 kg

DRUGS (13)
  1. PERMAX [Suspect]
     Indication: PARKINSON'S DISEASE
     Dosage: 50 UG/3 DAY
     Dates: start: 20040205, end: 20040710
  2. MADOPAR [Concomitant]
  3. NAUZELIN (DOMPERIDONE) [Concomitant]
  4. UREPEARL (UREA) [Concomitant]
  5. LOXONIN (LOXOPROFEN SODIUM) [Concomitant]
  6. SELBEX (TEPRENONE) [Concomitant]
  7. LENDORM [Concomitant]
  8. ASASION (TRIAZOLAM) [Concomitant]
  9. LOXOPROFEN SODIUM [Concomitant]
  10. ASPARA-CA (ASPARTATE CALCIUM) [Concomitant]
  11. TOYOFAROL (ALFACALCIDOL) [Concomitant]
  12. KETOPROFEN [Concomitant]
  13. HOCHUUEKKITOU [Concomitant]

REACTIONS (9)
  - ARRHYTHMIA [None]
  - ATRIOVENTRICULAR BLOCK FIRST DEGREE [None]
  - CARDIAC ARREST [None]
  - CARDIOMEGALY [None]
  - FEMORAL NECK FRACTURE [None]
  - SUDDEN DEATH [None]
  - THROMBOSIS [None]
  - ULNA FRACTURE [None]
  - VENTRICULAR HYPERTROPHY [None]
